FAERS Safety Report 12808723 (Version 1)
Quarter: 2016Q4

REPORT INFORMATION
  Report Type: Spontaneous
  Country: US (occurrence: US)
  Receive Date: 20161004
  Receipt Date: 20161004
  Transmission Date: 20170207
  Serious: Yes (Hospitalization, Other)
  Sender: FDA-Public Use
  Company Number: US-SAOL THERAPEUTICS-2016SAO00745

PATIENT
  Sex: Female

DRUGS (5)
  1. BACLOFEN. [Suspect]
     Active Substance: BACLOFEN
     Indication: MULTIPLE SCLEROSIS
  2. TIZANIDINE. [Concomitant]
     Active Substance: TIZANIDINE
     Dosage: UNK
     Dates: start: 2006
  3. LIORESAL [Suspect]
     Active Substance: BACLOFEN
  4. OTHER UNIDENTIFIED MEDICATIONS [Concomitant]
  5. BACLOFEN. [Suspect]
     Active Substance: BACLOFEN
     Indication: MUSCLE SPASTICITY
     Dosage: 996.4 ?G, \DAY
     Route: 037

REACTIONS (10)
  - Malaise [Recovered/Resolved]
  - Anal incontinence [Unknown]
  - Skin ulcer [Unknown]
  - Restless legs syndrome [Unknown]
  - Drug withdrawal syndrome [Recovered/Resolved]
  - Aspiration [Recovered/Resolved]
  - Gastrointestinal disorder [Recovered/Resolved]
  - Pneumonia [Recovered/Resolved]
  - Drug dose omission [Recovered/Resolved]
  - Fear [Recovered/Resolved]

NARRATIVE: CASE EVENT DATE: 2006
